FAERS Safety Report 7995351-8 (Version None)
Quarter: 2011Q4

REPORT INFORMATION
  Report Type: 
  Country: None (occurrence: None)
  Receive Date: 20111220
  Receipt Date: 20111213
  Transmission Date: 20120403
  Serious: Yes (Other)
  Sender: FDA-Public Use
  Company Number: NL-UCBSA-047553

PATIENT
  Age: 92 Year
  Sex: Male
  Weight: 79 kg

DRUGS (11)
  1. FOLIUMZUUR ACTAVIS [Concomitant]
     Dosage: 0.5MG, 1 TIMES PER 1.5MG.
  2. METFORMINE HCL [Concomitant]
  3. OMEZPRAZOL ACTAVIS [Concomitant]
  4. ACETYLSALICYLZUUR CARDIO A [Concomitant]
  5. KEPPRA [Suspect]
     Indication: EPILEPSY
     Dates: start: 20110601, end: 20110824
  6. LEVOTHYROXINE SODIUM [Concomitant]
  7. ALFACALCIDOL [Concomitant]
  8. PERSANTIN [Concomitant]
  9. ALLOPURINOL [Concomitant]
  10. HALDOL [Concomitant]
     Dosage: DOSAGE-2 X HALF TABLET
  11. MOVICOLON NATUREL POEDER VOOR DRANK [Concomitant]
     Dosage: FORM-SACHET

REACTIONS (4)
  - THROMBOCYTOPENIA [None]
  - MUSCULAR WEAKNESS [None]
  - MYALGIA [None]
  - LEUKOPENIA [None]
